FAERS Safety Report 6844474-5 (Version None)
Quarter: 2010Q2

REPORT INFORMATION
  Report Type: 
  Country: None (occurrence: None)
  Receive Date: 20100629
  Receipt Date: 20100504
  Transmission Date: 20101027
  Serious: No
  Sender: FDA-Public Use
  Company Number: US-WYE-H14965410

PATIENT
  Age: 62 Year
  Sex: Female
  Weight: 59.02 kg

DRUGS (5)
  1. PRISTIQ [Suspect]
     Indication: DEPRESSION
     Dosage: 50 MG 1X PER 1 DAY, ORAL; 100 MG 1X PER 1 DAY, ORAL
     Route: 048
     Dates: start: 20090401, end: 20090701
  2. PRISTIQ [Suspect]
     Indication: DEPRESSION
     Dosage: 50 MG 1X PER 1 DAY, ORAL; 100 MG 1X PER 1 DAY, ORAL
     Route: 048
     Dates: start: 20090701, end: 20091201
  3. WELLBUTRIN XL [Suspect]
     Indication: DEPRESSION
     Dosage: 150 MG 1X PER 1 DAY
     Dates: start: 20090601
  4. SYNTHROID [Concomitant]
  5. ACETAMINOPHEN [Concomitant]

REACTIONS (2)
  - ABDOMINAL PAIN UPPER [None]
  - DRUG INEFFECTIVE [None]
